FAERS Safety Report 21060352 (Version 1)
Quarter: 2022Q3

REPORT INFORMATION
  Report Type: Spontaneous
  Country: US (occurrence: US)
  Receive Date: 20220708
  Receipt Date: 20220708
  Transmission Date: 20221026
  Serious: No
  Sender: FDA-Public Use
  Company Number: US-SA-SAC20220705000567

PATIENT
  Age: 26 Year
  Sex: Female
  Weight: 73.93 kg

DRUGS (1)
  1. DUPIXENT [Suspect]
     Active Substance: DUPILUMAB
     Indication: Dermatitis atopic
     Dosage: 300 MG, QOW
     Route: 058
     Dates: start: 20220404, end: 20220614

REACTIONS (5)
  - Injection site urticaria [Unknown]
  - Swelling [Unknown]
  - Injection site warmth [Unknown]
  - Pruritus [Unknown]
  - Injection site reaction [Unknown]
